FAERS Safety Report 13725318 (Version 1)
Quarter: 2017Q3

REPORT INFORMATION
  Report Type: Spontaneous
  Country: US (occurrence: US)
  Receive Date: 20170706
  Receipt Date: 20170706
  Transmission Date: 20171127
  Serious: No
  Sender: FDA-Public Use
  Company Number: US-PFIZER INC-2017288960

PATIENT
  Age: 56 Year
  Sex: Female
  Weight: 69.4 kg

DRUGS (3)
  1. CIMZIA [Concomitant]
     Active Substance: CERTOLIZUMAB PEGOL
     Indication: PSORIATIC ARTHROPATHY
     Dosage: TWO 200MG INJECTIONS ONCE A MONTH
  2. LYRICA [Suspect]
     Active Substance: PREGABALIN
     Dosage: 50MG CAPSULE BY MOUTH TWICE A DAY
     Route: 048
     Dates: start: 20170531
  3. LYRICA [Suspect]
     Active Substance: PREGABALIN
     Indication: FIBROMYALGIA
     Dosage: UNK
     Route: 048

REACTIONS (4)
  - Drug ineffective [Unknown]
  - Joint swelling [Unknown]
  - Pain [Unknown]
  - Condition aggravated [Unknown]
